FAERS Safety Report 4776360-9 (Version None)
Quarter: 2005Q3

REPORT INFORMATION
  Report Type: 
  Country: None (occurrence: None)
  Receive Date: 20050921
  Receipt Date: 20050908
  Transmission Date: 20060218
  Serious: Yes (Other)
  Sender: FDA-Public Use
  Company Number: 2005113430

PATIENT
  Age: 76 Year
  Sex: Female
  Weight: 79 kg

DRUGS (7)
  1. AROMASIN [Suspect]
     Indication: BREAST CANCER
     Dosage: (DAILY), ORAL
     Route: 048
     Dates: start: 20050515, end: 20050605
  2. ANTIHYPERTENSIVES (ANTIHYPERTENSIVES) [Concomitant]
  3. GLUCOPHAGE (METFROMIN HYDROCHLORIDE0 [Concomitant]
  4. DIHYDROERGOTAMINE MESYLATE [Concomitant]
  5. ALDACTAZINE (ALTIZIDE, SPIRONOLACTONE) [Concomitant]
  6. LEXOMIL (BROMAZEPAM) [Concomitant]
  7. FRACTAL (FLUVASTATIN) [Concomitant]

REACTIONS (1)
  - ANGIONEUROTIC OEDEMA [None]
